FAERS Safety Report 9528518 (Version 1)
Quarter: 2013Q1

REPORT INFORMATION
  Report Type: Spontaneous
  Country: US (occurrence: None)
  Receive Date: 20130314
  Receipt Date: 20130314
  Transmission Date: 20140127
  Serious: No
  Sender: FDA-Public Use
  Company Number: 1301USA008424

PATIENT
  Sex: Male

DRUGS (1)
  1. VICTRELIS ( BOCEPREVIR) CAPSULE [Suspect]

REACTIONS (3)
  - Overdose [None]
  - Product quality issue [None]
  - No adverse event [None]
